FAERS Safety Report 16960569 (Version 1)
Quarter: 2019Q4

REPORT INFORMATION
  Report Type: Spontaneous
  Country: ES (occurrence: ES)
  Receive Date: 20191025
  Receipt Date: 20191025
  Transmission Date: 20200122
  Serious: Yes (Life-Threatening, Hospitalization, Other)
  Sender: FDA-Public Use
  Company Number: ES-GLAXOSMITHKLINE-ES2019192560

PATIENT
  Age: 10 Year
  Sex: Female
  Weight: 39 kg

DRUGS (3)
  1. LAMOTRIGINE. [Suspect]
     Active Substance: LAMOTRIGINE
     Indication: ATYPICAL BENIGN PARTIAL EPILEPSY
     Dosage: UNK
     Route: 048
     Dates: start: 20190805, end: 20190914
  2. LEVETIRACETAM. [Interacting]
     Active Substance: LEVETIRACETAM
     Indication: ATYPICAL BENIGN PARTIAL EPILEPSY
     Dosage: UNK
     Route: 048
     Dates: start: 20181203
  3. VALPROATE SODIUM. [Interacting]
     Active Substance: VALPROATE SODIUM
     Indication: ATYPICAL BENIGN PARTIAL EPILEPSY
     Dosage: 200 MG
     Route: 048
     Dates: start: 2018

REACTIONS (2)
  - Drug interaction [Unknown]
  - Stevens-Johnson syndrome [Recovering/Resolving]

NARRATIVE: CASE EVENT DATE: 2019
